FAERS Safety Report 9880559 (Version 1)
Quarter: 2014Q1

REPORT INFORMATION
  Report Type: Report from Study
  Country: CA (occurrence: CA)
  Receive Date: 20140207
  Receipt Date: 20140207
  Transmission Date: 20141002
  Serious: Yes (Other)
  Sender: FDA-Public Use
  Company Number: CA-JNJFOC-20140201645

PATIENT
  Age: 54 Year
  Sex: Male
  Weight: 82 kg

DRUGS (2)
  1. REMICADE [Suspect]
     Indication: CROHN^S DISEASE
     Dosage: 1000MG ONCE EVER 6-8 WEEKS
     Route: 042
     Dates: start: 20051215
  2. METHOTREXATE [Concomitant]
     Route: 065

REACTIONS (1)
  - Pyoderma gangrenosum [Recovering/Resolving]
